FAERS Safety Report 8773618 (Version 1)
Quarter: 2012Q4

REPORT INFORMATION
  Report Type: 
  Country: SG (occurrence: SG)
  Receive Date: 20120907
  Receipt Date: 20120907
  Transmission Date: 20130627
  Serious: Yes (Hospitalization)
  Sender: FDA-Public Use
  Company Number: SG-ASTRAZENECA-2012SE65507

PATIENT

DRUGS (2)
  1. BRILINTA [Suspect]
     Route: 048
     Dates: start: 201207
  2. ATORVASTATIN [Interacting]
     Route: 065
     Dates: start: 201207

REACTIONS (2)
  - Drug interaction [Unknown]
  - Pancreatitis acute [Unknown]
